FAERS Safety Report 5235496-9 (Version None)
Quarter: 2007Q1

REPORT INFORMATION
  Report Type: 
  Country: None (occurrence: None)
  Receive Date: 20061208
  Receipt Date: 20060627
  Transmission Date: 20070707
  Serious: Yes (Other)
  Sender: FDA-Public Use
  Company Number: 2006UW13570

PATIENT
  Age: 55 Year
  Sex: Female

DRUGS (6)
  1. CRESTOR [Suspect]
     Dates: start: 20031001
  2. BENICAR [Concomitant]
  3. DYAZIDE [Concomitant]
  4. KLOR-CON [Concomitant]
  5. SYNTHROID [Concomitant]
  6. LIPITOR /GB/ [Concomitant]

REACTIONS (2)
  - HAEMATOCRIT DECREASED [None]
  - HAEMOGLOBIN DECREASED [None]
